FAERS Safety Report 6408772-1 (Version None)
Quarter: 2009Q4

REPORT INFORMATION
  Report Type: 
  Country: None (occurrence: None)
  Receive Date: 20091021
  Receipt Date: 20091018
  Transmission Date: 20100525
  Serious: Yes (Other)
  Sender: FDA-Public Use
  Company Number: A0812273A

PATIENT
  Sex: Male

DRUGS (1)
  1. LAMICTAL [Suspect]
     Indication: BIPOLAR DISORDER
     Dosage: 150MG TWICE PER DAY

REACTIONS (3)
  - BLOOD GLUCOSE FLUCTUATION [None]
  - DIABETES MELLITUS [None]
  - HYPERTENSION [None]
